FAERS Safety Report 9713411 (Version 1)
Quarter: 2013Q4

REPORT INFORMATION
  Report Type: Spontaneous
  Country: US (occurrence: None)
  Receive Date: 20131125
  Receipt Date: 20131125
  Transmission Date: 20140711
  Serious: Yes (Hospitalization)
  Sender: FDA-Public Use
  Company Number: None

PATIENT
  Age: 58 Year
  Sex: Female
  Weight: 56.25 kg

DRUGS (1)
  1. BONIVA [Suspect]
     Indication: OSTEOPENIA
     Dosage: 150 MG/ 1 DOSE ONCE MONTHLY ORAL
     Route: 048
     Dates: start: 20131121

REACTIONS (4)
  - Chest pain [None]
  - Chest discomfort [None]
  - Musculoskeletal pain [None]
  - Myalgia [None]
